FAERS Safety Report 5188160-9 (Version None)
Quarter: 2006Q4

REPORT INFORMATION
  Report Type: 
  Country: None (occurrence: None)
  Receive Date: 20061221
  Receipt Date: 20061211
  Transmission Date: 20070319
  Serious: Yes (Other)
  Sender: FDA-Public Use
  Company Number: US-SANOFI-SYNTHELABO-A03200607368

PATIENT
  Sex: Male

DRUGS (5)
  1. PLAVIX [Suspect]
     Indication: VASCULAR BYPASS GRAFT
     Route: 048
     Dates: end: 20061101
  2. ZOCOR [Concomitant]
     Dosage: UNK
     Route: 048
  3. ASPIRIN [Concomitant]
     Dosage: UNK
     Route: 048
  4. FINASTERIDE [Concomitant]
     Dosage: UNK
     Route: 048
  5. HYTRIN [Concomitant]
     Dosage: UNK
     Route: 048

REACTIONS (1)
  - THROMBOCYTHAEMIA [None]
